FAERS Safety Report 6386645-0 (Version None)
Quarter: 2009Q4

REPORT INFORMATION
  Report Type: 
  Country: None (occurrence: None)
  Receive Date: 20091002
  Receipt Date: 20090921
  Transmission Date: 20100525
  Serious: Yes (Other)
  Sender: FDA-Public Use
  Company Number: US-PFIZER INC-2009245051

PATIENT
  Sex: Male

DRUGS (1)
  1. XALATAN [Suspect]
     Dosage: UNK

REACTIONS (2)
  - DRUG DISPENSING ERROR [None]
  - DRUG TOXICITY [None]
